FAERS Safety Report 10757566 (Version 1)
Quarter: 2015Q1

REPORT INFORMATION
  Report Type: Spontaneous
  Country: US (occurrence: US)
  Receive Date: 20150203
  Receipt Date: 20150203
  Transmission Date: 20150721
  Serious: No
  Sender: FDA-Public Use
  Company Number: US-LEO PHARMA-232114

PATIENT
  Sex: Female

DRUGS (1)
  1. PICATO [Suspect]
     Active Substance: INGENOL MEBUTATE
     Indication: PRECANCEROUS CELLS PRESENT

REACTIONS (4)
  - Application site vesicles [Unknown]
  - Application site pain [Unknown]
  - Application site exfoliation [Unknown]
  - Application site erythema [Unknown]
